FAERS Safety Report 16965733 (Version 2)
Quarter: 2019Q4

REPORT INFORMATION
  Report Type: Spontaneous
  Country: FR (occurrence: FR)
  Receive Date: 20191028
  Receipt Date: 20191031
  Transmission Date: 20200122
  Serious: Yes (Hospitalization)
  Sender: FDA-Public Use
  Company Number: FR-PFIZER INC-2019460435

PATIENT
  Age: 83 Year
  Sex: Female
  Weight: 67 kg

DRUGS (15)
  1. FUROSEMIDE. [Suspect]
     Active Substance: FUROSEMIDE
     Dosage: UNK
     Route: 065
  2. FUROSEMIDE. [Suspect]
     Active Substance: FUROSEMIDE
     Indication: HYPERTENSION
     Dosage: 80 MILLIGRAM, QD
     Route: 048
  3. TROSPIPHARM [Suspect]
     Active Substance: TROSPIUM CHLORIDE
     Dosage: 40 MG, DAILY
     Route: 048
     Dates: end: 20180809
  4. EZETIMIBE. [Suspect]
     Active Substance: EZETIMIBE
     Indication: DYSLIPIDAEMIA
     Dosage: 1 DF, 1X/DAY
     Route: 048
     Dates: end: 20180809
  5. AMLOR [Suspect]
     Active Substance: AMLODIPINE BESYLATE
     Indication: HYPERTENSION
     Dosage: 1 DF, 1X/DAY
     Route: 048
     Dates: end: 20180809
  6. OKIMUS [Suspect]
     Active Substance: HAWTHORN LEAF WITH FLOWER\QUININE
     Dosage: UNK UNK, QD
     Route: 048
     Dates: end: 20180809
  7. COSOPT [Suspect]
     Active Substance: DORZOLAMIDE HYDROCHLORIDE\TIMOLOL MALEATE
     Indication: AGE-RELATED MACULAR DEGENERATION
     Dosage: 1 DF, 1X/DAY
     Route: 047
     Dates: end: 20180814
  8. ALPRAZOLAM. [Concomitant]
     Active Substance: ALPRAZOLAM
     Dosage: UNK
  9. RIVASTIGMINE. [Suspect]
     Active Substance: RIVASTIGMINE
     Indication: DEMENTIA ALZHEIMER^S TYPE
     Dosage: UNK UNK, QD
     Route: 003
     Dates: end: 20180814
  10. LEVOTHYROX [Concomitant]
     Active Substance: LEVOTHYROXINE
     Dosage: UNK
  11. HEMIGOXINE NATIVELLE [Suspect]
     Active Substance: DIGOXIN
     Indication: ATRIAL FIBRILLATION
     Dosage: 0.125 MILLIGRAM, QD
     Route: 048
     Dates: end: 20180809
  12. PANTOPRAZOLE [Suspect]
     Active Substance: PANTOPRAZOLE
     Dosage: 20 MILLIGRAM, QD
     Route: 048
     Dates: end: 20180809
  13. TRIMEBUTINE [Suspect]
     Active Substance: TRIMEBUTINE
     Dosage: 400 MILLIGRAM, QD
     Route: 048
     Dates: end: 20180809
  14. PREVISCAN [FLUINDIONE] [Concomitant]
     Active Substance: FLUINDIONE
     Dosage: UNK
  15. SPIRONOLACTONE. [Suspect]
     Active Substance: SPIRONOLACTONE
     Indication: HYPERTENSION
     Dosage: 1 DF, 1X/DAY
     Route: 048
     Dates: end: 20180809

REACTIONS (2)
  - Fall [Recovered/Resolved]
  - Bradycardia [Recovered/Resolved]

NARRATIVE: CASE EVENT DATE: 20180808
